FAERS Safety Report 4304281-4 (Version None)
Quarter: 2004Q1

REPORT INFORMATION
  Report Type: 
  Country: None (occurrence: None)
  Receive Date: 20040224
  Receipt Date: 20040213
  Transmission Date: 20041129
  Serious: Yes (Death)
  Sender: FDA-Public Use
  Company Number: USA-2003-0007607

PATIENT
  Age: 51 Year
  Sex: Male
  Weight: 58 kg

DRUGS (1)
  1. OXYCODONE HCL [Suspect]

REACTIONS (22)
  - ABDOMINAL INJURY [None]
  - ACETABULUM FRACTURE [None]
  - ANKLE FRACTURE [None]
  - CONTUSION [None]
  - DECUBITUS ULCER [None]
  - EXCORIATION [None]
  - FOREARM FRACTURE [None]
  - HEAD INJURY [None]
  - HEPATOMEGALY [None]
  - INJURY [None]
  - JOINT DISLOCATION [None]
  - LIMB INJURY [None]
  - LOWER LIMB FRACTURE [None]
  - LUMBAR VERTEBRAL FRACTURE [None]
  - LUNG INJURY [None]
  - PELVIC HAEMATOMA [None]
  - PNEUMONIA [None]
  - PUBIC RAMI FRACTURE [None]
  - RIB FRACTURE [None]
  - ROAD TRAFFIC ACCIDENT [None]
  - STAPHYLOCOCCAL INFECTION [None]
  - UPPER LIMB FRACTURE [None]
